FAERS Safety Report 5053157-6 (Version None)
Quarter: 2006Q3

REPORT INFORMATION
  Report Type: 
  Country: None (occurrence: None)
  Receive Date: 20060712
  Receipt Date: 20060623
  Transmission Date: 20061208
  Serious: Yes (Death, Hospitalization, Other)
  Sender: FDA-Public Use
  Company Number: US200606005000

PATIENT
  Age: 78 Year
  Sex: Male
  Weight: 56.3 kg

DRUGS (4)
  1. GEMCITABINE [Suspect]
     Indication: BLADDER CANCER
     Dosage: 1770 MG, OTHER, INTRAVENOUS
     Route: 042
     Dates: start: 20050110, end: 20050208
  2. PACLITAXEL [Concomitant]
     Indication: BLADDER CANCER
     Dosage: 216 MG, OTHER, INTRAVENOUS
     Route: 042
     Dates: start: 20050110, end: 20050201
  3. LEVAQUIN [Concomitant]
  4. ROCEPHIN            /GFR/ (CEFTRIAXONE SODIUM) [Concomitant]

REACTIONS (30)
  - ABASIA [None]
  - ABDOMINAL DISTENSION [None]
  - BLADDER CANCER [None]
  - BLOOD CREATINE INCREASED [None]
  - BLOOD GLUCOSE INCREASED [None]
  - BLOOD POTASSIUM INCREASED [None]
  - BLOOD SODIUM DECREASED [None]
  - BLOOD UREA INCREASED [None]
  - CARDIAC FAILURE CONGESTIVE [None]
  - CATHETER SITE ERYTHEMA [None]
  - CELLULITIS [None]
  - CHILLS [None]
  - CORYNEBACTERIUM INFECTION [None]
  - DECUBITUS ULCER [None]
  - DEHYDRATION [None]
  - HAEMOGLOBIN DECREASED [None]
  - HYDRONEPHROSIS [None]
  - LOSS OF CONSCIOUSNESS [None]
  - MALIGNANT NEOPLASM PROGRESSION [None]
  - MALNUTRITION [None]
  - MUSCULAR WEAKNESS [None]
  - ORAL INTAKE REDUCED [None]
  - PLATELET COUNT DECREASED [None]
  - PLEURAL EFFUSION [None]
  - PROTHROMBIN TIME PROLONGED [None]
  - PYREXIA [None]
  - RED BLOOD CELLS URINE POSITIVE [None]
  - RESPIRATORY DISTRESS [None]
  - URINARY TRACT INFECTION [None]
  - WHITE BLOOD CELL COUNT DECREASED [None]
